FAERS Safety Report 4960101-6 (Version None)
Quarter: 2006Q1

REPORT INFORMATION
  Report Type: 
  Country: None (occurrence: None)
  Receive Date: 20060328
  Receipt Date: 20060314
  Transmission Date: 20060701
  Serious: Yes (Hospitalization)
  Sender: FDA-Public Use
  Company Number: 20060042

PATIENT
  Sex: Female

DRUGS (4)
  1. EPINEPHRINE [Suspect]
     Indication: ANAPHYLACTIC REACTION
     Dosage: TOTAL OF 6-8 MG
     Dates: start: 20050201, end: 20050201
  2. EPINEPHRINE [Suspect]
     Indication: DYSPNOEA
     Dosage: TOTAL OF 6-8 MG
     Dates: start: 20050201, end: 20050201
  3. SINGULAIR [Concomitant]
  4. CLARITIN-D [Concomitant]

REACTIONS (7)
  - ANAPHYLACTIC REACTION [None]
  - CARDIAC ARREST [None]
  - CARDIAC FAILURE CONGESTIVE [None]
  - DYSPNOEA [None]
  - OCCUPATIONAL EXPOSURE TO TOXIC AGENT [None]
  - PERFUME SENSITIVITY [None]
  - RESPIRATORY DISORDER [None]
